FAERS Safety Report 24142332 (Version 1)
Quarter: 2024Q3

REPORT INFORMATION
  Report Type: Report from Study
  Country: CO (occurrence: CO)
  Receive Date: 20240726
  Receipt Date: 20240726
  Transmission Date: 20241016
  Serious: Yes (Death)
  Sender: PFIZER
  Company Number: CO-PFIZER INC-PV202400097384

PATIENT
  Age: 88 Year
  Sex: Male

DRUGS (5)
  1. TAFAMIDIS [Suspect]
     Active Substance: TAFAMIDIS
     Dosage: 61 MG, 24H
     Dates: start: 20230803, end: 20240523
  2. PANTOPRAZOLE [Concomitant]
     Active Substance: PANTOPRAZOLE
     Indication: Gastritis
     Dosage: UNK
     Dates: start: 20220927
  3. APIXABAN [Concomitant]
     Active Substance: APIXABAN
     Indication: Atrial fibrillation
     Dosage: UNK
     Dates: start: 20220927
  4. METILDIGOXIN [Concomitant]
     Active Substance: METILDIGOXIN
     Indication: Cardiac failure
     Dosage: BETAMIL DIGOXINA
  5. FUROSEMIDE [Concomitant]
     Active Substance: FUROSEMIDE
     Indication: Cardiac failure
     Dosage: UNK
     Dates: start: 20220927

REACTIONS (1)
  - Death [Fatal]

NARRATIVE: CASE EVENT DATE: 20240721
